FAERS Safety Report 6574824-9 (Version None)
Quarter: 2010Q1

REPORT INFORMATION
  Report Type: 
  Country: None (occurrence: None)
  Receive Date: 20100209
  Receipt Date: 20100202
  Transmission Date: 20100710
  Serious: Yes (Death, Hospitalization, Other)
  Sender: FDA-Public Use
  Company Number: PHHY2009US54438

PATIENT
  Sex: Male
  Weight: 137 kg

DRUGS (19)
  1. EXJADE [Suspect]
     Indication: LYMPHOPROLIFERATIVE DISORDER
     Dosage: 2500 MG, QD
     Route: 048
  2. PREDNISONE [Concomitant]
     Dosage: 100 MG DAILY FOR 3 DAYS
  3. PREDNISONE [Concomitant]
     Dosage: 60 MG DAILY FOR 3 DAYS
  4. PREDNISONE [Concomitant]
     Dosage: 40 MG DAILY FOR 3 DAYS
  5. PREDNISONE [Concomitant]
     Dosage: 20 MG DAILY FOR 3 DAYS
  6. PREDNISONE [Concomitant]
     Dosage: 10 MG DAILY FOR 3 DAYS
  7. VORICONAZOLE [Concomitant]
     Dosage: 200 MG/DAY
     Route: 048
  8. LEVOFLOXACIN [Concomitant]
     Dosage: 250 MG DAILY FOR 1 MORE WEEK
  9. BACTRIM DS [Concomitant]
     Dosage: 2 TAB 3 TIMES A DAY
  10. LUMIGAN [Concomitant]
     Dosage: 1 DROP IN RIGHT EYE AT BED TIME
  11. PERIDEX [Concomitant]
     Dosage: 4 TIMES DAILY
  12. FUROSEMID [Concomitant]
     Dosage: 40 MG DAILY
     Route: 048
  13. METOPROLOL TARTRATE [Concomitant]
     Dosage: 50 MG, BID
     Route: 048
  14. OMEPRAZOL [Concomitant]
     Dosage: 20 MG, BID
     Route: 048
  15. ROSUVASTATIN [Concomitant]
     Dosage: 20 MG DAILY
     Route: 048
  16. TIMOPTIC [Concomitant]
     Dosage: 1 DROP DAILY
  17. ACETAMINOPHEN [Concomitant]
     Dosage: 650 MG EVERY 4 HOURS AS NEEDED
  18. NITROGLYCERIN [Concomitant]
     Dosage: 0.4 MG PRN
     Route: 060
  19. AMBIEN [Concomitant]
     Dosage: 5 MG AT BED TIME

REACTIONS (12)
  - ALVEOLITIS [None]
  - DYSPNOEA [None]
  - DYSPNOEA EXERTIONAL [None]
  - HAEMOGLOBIN DECREASED [None]
  - HAEMOPTYSIS [None]
  - INFLAMMATION [None]
  - IRON OVERLOAD [None]
  - MALIGNANT NEOPLASM PROGRESSION [None]
  - PANCYTOPENIA [None]
  - PLATELET COUNT DECREASED [None]
  - PLEURAL EFFUSION [None]
  - RENAL FAILURE CHRONIC [None]
